FAERS Safety Report 7315433-3 (Version None)
Quarter: 2011Q1

REPORT INFORMATION
  Report Type: 
  Country: None (occurrence: None)
  Receive Date: 20110225
  Receipt Date: 20110221
  Transmission Date: 20110831
  Serious: Yes (Other)
  Sender: FDA-Public Use
  Company Number: B0701366A

PATIENT
  Sex: Female

DRUGS (1)
  1. DERMOVATE [Suspect]
     Indication: PRODUCT USED FOR UNKNOWN INDICATION
     Route: 061
     Dates: start: 20110212, end: 20110212

REACTIONS (8)
  - SKIN ATROPHY [None]
  - PIGMENTATION DISORDER [None]
  - DYSGEUSIA [None]
  - CHEST DISCOMFORT [None]
  - PANIC ATTACK [None]
  - MADAROSIS [None]
  - DRUG ADMINISTRATION ERROR [None]
  - BURNING SENSATION [None]
